FAERS Safety Report 19832400 (Version 1)
Quarter: 2021Q3

REPORT INFORMATION
  Report Type: Spontaneous
  Country: US (occurrence: US)
  Receive Date: 20210914
  Receipt Date: 20210914
  Transmission Date: 20211014
  Serious: No
  Sender: FDA-Public Use
  Company Number: US-GILEAD-2021-0548258

PATIENT
  Age: 49 Year
  Sex: Female

DRUGS (1)
  1. VEKLURY [Suspect]
     Active Substance: REMDESIVIR
     Indication: COVID-19
     Dosage: ^200MG, 100MG, 100MG^
     Route: 042
     Dates: start: 20210830, end: 20210901

REACTIONS (1)
  - Transaminases increased [Unknown]
